FAERS Safety Report 4713764-4 (Version None)
Quarter: 2005Q3

REPORT INFORMATION
  Report Type: 
  Country: None (occurrence: None)
  Receive Date: 20050713
  Receipt Date: 20050302
  Transmission Date: 20060218
  Serious: Yes (Hospitalization)
  Sender: FDA-Public Use
  Company Number: US-MERCK-0503USA00673

PATIENT
  Age: 60 Year
  Sex: Male
  Weight: 91 kg

DRUGS (6)
  1. VIOXX [Suspect]
     Indication: ARTHRITIS
     Route: 048
     Dates: start: 20040114, end: 20040513
  2. VIOXX [Suspect]
     Indication: PAIN
     Route: 048
     Dates: start: 20040114, end: 20040513
  3. LIPITOR [Concomitant]
     Indication: BLOOD CHOLESTEROL INCREASED
     Route: 065
  4. ZOCOR [Concomitant]
     Indication: BLOOD CHOLESTEROL INCREASED
     Route: 048
  5. SAW PALMETTO [Concomitant]
     Route: 065
  6. MOTRIN [Concomitant]
     Route: 065

REACTIONS (7)
  - ACUTE CORONARY SYNDROME [None]
  - ADVERSE EVENT [None]
  - ANGINA PECTORIS [None]
  - BRADYCARDIA [None]
  - CORONARY ARTERY DISEASE [None]
  - MYOCARDIAL INFARCTION [None]
  - VENTRICULAR TACHYCARDIA [None]
